FAERS Safety Report 17305321 (Version 1)
Quarter: 2020Q1

REPORT INFORMATION
  Report Type: Spontaneous
  Country: US (occurrence: US)
  Receive Date: 20200123
  Receipt Date: 20200123
  Transmission Date: 20200409
  Serious: Yes (Hospitalization, Other)
  Sender: FDA-Public Use
  Company Number: US-TEVA-2020-US-1171425

PATIENT
  Age: 31 Year
  Sex: Female

DRUGS (5)
  1. CLOZAPINE. [Suspect]
     Active Substance: CLOZAPINE
     Indication: SCHIZOPHRENIA
     Dosage: 300 MILLIGRAM DAILY; 150 MG IN THE MORNING AND 150 MG IN THE EVENING
     Route: 065
  2. LEXAPRO [Concomitant]
     Active Substance: ESCITALOPRAM OXALATE
     Dosage: 20 MILLIGRAM DAILY;
  3. LORAZEPAM. [Concomitant]
     Active Substance: LORAZEPAM
     Dosage: 1 MG AS NEEDED
  4. ZYPREXA [Concomitant]
     Active Substance: OLANZAPINE
  5. CLOZAPINE. [Suspect]
     Active Substance: CLOZAPINE
     Dosage: 325 MG DAILY
     Route: 065

REACTIONS (8)
  - Apathy [Not Recovered/Not Resolved]
  - White blood cell count decreased [Unknown]
  - Hallucination, visual [Unknown]
  - Catatonia [Not Recovered/Not Resolved]
  - Hospitalisation [Recovered/Resolved]
  - Delusion [Unknown]
  - General physical health deterioration [Unknown]
  - Disturbance in social behaviour [Not Recovered/Not Resolved]

NARRATIVE: CASE EVENT DATE: 20190401
